FAERS Safety Report 14343440 (Version 1)
Quarter: 2018Q1

REPORT INFORMATION
  Report Type: Spontaneous
  Country: US (occurrence: US)
  Receive Date: 20180102
  Receipt Date: 20180102
  Transmission Date: 20180509
  Serious: Yes (Death)
  Sender: FDA-Public Use
  Company Number: US-PROCTER_AND_GAMBLE-GS17143736

PATIENT
  Sex: Female

DRUGS (1)
  1. NYQUIL NOS [Suspect]
     Active Substance: ACETAMINOPHEN\CHLORPHENIRAMINE\DEXTROMETHORPHAN\DIPHENHYDRAMINE\DOXYLAMINE\PSEUDOEPHEDRINE
     Dosage: UNK
     Route: 048

REACTIONS (4)
  - Liver disorder [Fatal]
  - Drug dependence [Fatal]
  - Hepatic failure [Fatal]
  - Unevaluable event [Fatal]
